FAERS Safety Report 10175060 (Version 2)
Quarter: 2014Q2

REPORT INFORMATION
  Report Type: Spontaneous
  Country: US (occurrence: US)
  Receive Date: 20140515
  Receipt Date: 20140605
  Transmission Date: 20141212
  Serious: No
  Sender: FDA-Public Use
  Company Number: US-009507513-1405USA004416

PATIENT
  Age: 60 Year
  Sex: Female

DRUGS (1)
  1. OXYTROL FOR WOMEN [Suspect]
     Indication: URINARY INCONTINENCE
     Dosage: A NEW PATCH EVERY 4 DAYS
     Route: 062
     Dates: end: 2014

REACTIONS (1)
  - Drug ineffective [Unknown]
